FAERS Safety Report 17014501 (Version 3)
Quarter: 2019Q4

REPORT INFORMATION
  Report Type: Report from Study
  Country: JP (occurrence: JP)
  Receive Date: 20191111
  Receipt Date: 20191222
  Transmission Date: 20200122
  Serious: Yes (Other)
  Sender: FDA-Public Use
  Company Number: JP-BEH-2019108879

PATIENT
  Sex: Male
  Weight: 60.3 kg

DRUGS (12)
  1. IDELVION [Suspect]
     Active Substance: COAGULATION FACTOR IX RECOMBINANT HUMAN
     Dosage: 2000 INTERNATIONAL UNIT, TOT, 1 DAY
     Route: 042
     Dates: start: 20190805, end: 20190805
  2. IDELVION [Suspect]
     Active Substance: COAGULATION FACTOR IX RECOMBINANT HUMAN
     Indication: FACTOR IX DEFICIENCY
     Dosage: 2000 INTERNATIONAL UNIT, QW
     Route: 042
     Dates: start: 20180911, end: 20190305
  3. IDELVION [Suspect]
     Active Substance: COAGULATION FACTOR IX RECOMBINANT HUMAN
     Indication: PROPHYLAXIS
     Dosage: 2000 INTERNATIONAL UNIT, 10 DAYS
     Route: 042
     Dates: start: 20190313, end: 20190711
  4. IDELVION [Suspect]
     Active Substance: COAGULATION FACTOR IX RECOMBINANT HUMAN
     Dosage: 2000 INTERNATIONAL UNIT, TOT, 1 DAY
     Route: 042
     Dates: start: 20190731, end: 20190909
  5. IDELVION [Suspect]
     Active Substance: COAGULATION FACTOR IX RECOMBINANT HUMAN
     Dosage: 2000 INTERNATIONAL UNIT, TOT, 1 DAY
     Route: 042
     Dates: start: 20190731, end: 20190909
  6. IDELVION [Suspect]
     Active Substance: COAGULATION FACTOR IX RECOMBINANT HUMAN
     Dosage: 2000 INTERNATIONAL UNIT, TOT, 1 DAY
     Route: 042
     Dates: start: 20190805, end: 20190805
  7. IDELVION [Suspect]
     Active Substance: COAGULATION FACTOR IX RECOMBINANT HUMAN
     Indication: FACTOR IX DEFICIENCY
     Dosage: 2000 INTERNATIONAL UNIT, QW
     Route: 042
     Dates: start: 20180911, end: 20190305
  8. IDELVION [Suspect]
     Active Substance: COAGULATION FACTOR IX RECOMBINANT HUMAN
     Dosage: 2000 INTERNATIONAL UNIT, TOT, 1 DAY
     Route: 042
     Dates: start: 20190721, end: 20190721
  9. IDELVION [Suspect]
     Active Substance: COAGULATION FACTOR IX RECOMBINANT HUMAN
     Indication: HAEMOSTASIS
     Dosage: 2000 INTERNATIONAL UNIT, TOT, 1 DAY
     Route: 042
     Dates: start: 20190801, end: 20190801
  10. IDELVION [Suspect]
     Active Substance: COAGULATION FACTOR IX RECOMBINANT HUMAN
     Dosage: 2000 INTERNATIONAL UNIT, TOT, 1 DAY
     Route: 042
     Dates: start: 20190721, end: 20190721
  11. IDELVION [Suspect]
     Active Substance: COAGULATION FACTOR IX RECOMBINANT HUMAN
     Indication: PROPHYLAXIS
     Dosage: 2000 INTERNATIONAL UNIT, 10 DAYS
     Route: 042
     Dates: start: 20190313, end: 20190711
  12. IDELVION [Suspect]
     Active Substance: COAGULATION FACTOR IX RECOMBINANT HUMAN
     Indication: HAEMOSTASIS
     Dosage: 2000 INTERNATIONAL UNIT, TOT, 1 DAY
     Route: 042
     Dates: start: 20190801, end: 20190801

REACTIONS (2)
  - Enterocolitis bacterial [Recovered/Resolved]
  - Melaena [Recovered/Resolved]

NARRATIVE: CASE EVENT DATE: 20190729
